FAERS Safety Report 20591299 (Version 1)
Quarter: 2022Q1

REPORT INFORMATION
  Report Type: Spontaneous
  Country: DE (occurrence: DE)
  Receive Date: 20220314
  Receipt Date: 20220314
  Transmission Date: 20220423
  Serious: Yes (Hospitalization, Other)
  Sender: FDA-Public Use
  Company Number: DE-DCGMA-22197096

PATIENT
  Age: 68 Year
  Sex: Female
  Weight: 75 kg

DRUGS (4)
  1. EMPAGLIFLOZIN [Suspect]
     Active Substance: EMPAGLIFLOZIN
     Indication: Type 2 diabetes mellitus
     Route: 048
  2. RAMIPRIL [Concomitant]
     Active Substance: RAMIPRIL
     Indication: Hypertension
     Dosage: EVERY DAY 2 SEPARATED DOSES
     Route: 048
  3. SITAGLIPTIN [Concomitant]
     Active Substance: SITAGLIPTIN
     Indication: Type 2 diabetes mellitus
     Route: 048
  4. METFORMIN [Concomitant]
     Active Substance: METFORMIN HYDROCHLORIDE
     Indication: Type 2 diabetes mellitus
     Dosage: EVERY DAYS 2 SEPARATED DOSES
     Route: 048

REACTIONS (3)
  - Euglycaemic diabetic ketoacidosis [Recovered/Resolved]
  - Failure to suspend medication [Recovered/Resolved]
  - Product prescribing error [Recovered/Resolved]

NARRATIVE: CASE EVENT DATE: 20220214
